FAERS Safety Report 26138198 (Version 1)
Quarter: 2025Q4

REPORT INFORMATION
  Report Type: Spontaneous
  Country: JP (occurrence: JP)
  Receive Date: 20251210
  Receipt Date: 20251210
  Transmission Date: 20260117
  Serious: Yes (Other)
  Sender: ORION PHARMA
  Company Number: JP-SANDOZ-SDZ2024JP097955

PATIENT
  Age: 79 Year
  Sex: Female

DRUGS (9)
  1. ENTACAPONE [Suspect]
     Active Substance: ENTACAPONE
     Indication: Parkinson^s disease
     Route: 048
  2. DAPAGLIFLOZIN [Suspect]
     Active Substance: DAPAGLIFLOZIN
     Indication: Product used for unknown indication
     Route: 050
  3. ROPINIROLE [Concomitant]
     Active Substance: ROPINIROLE
  4. CARBIDOPA\LEVODOPA [Concomitant]
     Active Substance: CARBIDOPA\LEVODOPA
  5. EDOXABAN TOSYLATE [Concomitant]
     Active Substance: EDOXABAN TOSYLATE
  6. CLOPIDOGREL [Concomitant]
     Active Substance: CLOPIDOGREL BISULFATE
  7. FEBUXOSTAT [Concomitant]
     Active Substance: FEBUXOSTAT
  8. RABEPRAZOLE SODIUM [Concomitant]
     Active Substance: RABEPRAZOLE SODIUM
  9. CALCIUM SENNOSIDES [Concomitant]
     Active Substance: SENNOSIDES

REACTIONS (2)
  - Depressed level of consciousness [Unknown]
  - Dysphagia [Unknown]
